FAERS Safety Report 11080948 (Version 2)
Quarter: 2015Q3

REPORT INFORMATION
  Report Type: Spontaneous
  Country: US (occurrence: US)
  Receive Date: 20150501
  Receipt Date: 20150819
  Transmission Date: 20151125
  Serious: Yes (Hospitalization, Other)
  Sender: FDA-Public Use
  Company Number: 2015SP001348

PATIENT
  Sex: Female
  Weight: 99 kg

DRUGS (5)
  1. EFFEXOR [Suspect]
     Active Substance: VENLAFAXINE HYDROCHLORIDE
     Indication: DEPRESSION
  2. EFFEXOR [Suspect]
     Active Substance: VENLAFAXINE HYDROCHLORIDE
     Indication: DEPRESSION
     Dates: start: 2014
  3. ALCOHOL. [Suspect]
     Active Substance: ALCOHOL
  4. XANAX [Concomitant]
     Active Substance: ALPRAZOLAM
  5. LATUDA [Suspect]
     Active Substance: LURASIDONE HYDROCHLORIDE
     Indication: DEPRESSION
     Route: 048

REACTIONS (8)
  - Thinking abnormal [Not Recovered/Not Resolved]
  - Aggression [Unknown]
  - Contraindicated drug administered [Unknown]
  - Off label use [Unknown]
  - Alcohol use [Not Recovered/Not Resolved]
  - Suicidal ideation [Unknown]
  - Abnormal behaviour [Not Recovered/Not Resolved]
  - Suicidal behaviour [Unknown]
